FAERS Safety Report 23680007 (Version 1)
Quarter: 2024Q1

REPORT INFORMATION
  Report Type: Report from Study
  Country: CA (occurrence: None)
  Receive Date: 20240327
  Receipt Date: 20240327
  Transmission Date: 20240410
  Serious: Yes (Other)
  Sender: FDA-Public Use
  Company Number: 2024A068956

PATIENT
  Age: 26570 Day
  Sex: Male

DRUGS (9)
  1. LYNPARZA [Suspect]
     Active Substance: OLAPARIB
     Indication: Prostate cancer
     Route: 048
     Dates: start: 20240205
  2. AMLODIPINE [Concomitant]
     Active Substance: AMLODIPINE BESYLATE
  3. APO DUTASTERIDE [Concomitant]
  4. CALCIUM CARBONATE [Concomitant]
     Active Substance: CALCIUM CARBONATE
  5. PMS METHYLPHENIDATE [Concomitant]
  6. PREGABALIN [Concomitant]
     Active Substance: PREGABALIN
  7. TAMSULOSIN [Concomitant]
     Active Substance: TAMSULOSIN
  8. XG EVA [Concomitant]
  9. GOSERELIN [Concomitant]
     Active Substance: GOSERELIN

REACTIONS (5)
  - Dysentery [Unknown]
  - Dyschezia [Unknown]
  - Burning sensation [Unknown]
  - Flatulence [Unknown]
  - Asthenia [Unknown]

NARRATIVE: CASE EVENT DATE: 20240315
